FAERS Safety Report 10128425 (Version 1)
Quarter: 2014Q2

REPORT INFORMATION
  Report Type: Spontaneous
  Country: US (occurrence: US)
  Receive Date: 20140428
  Receipt Date: 20140428
  Transmission Date: 20141212
  Serious: Yes (Life-Threatening, Hospitalization)
  Sender: FDA-Public Use
  Company Number: US-BRISTOL-MYERS SQUIBB COMPANY-20643995

PATIENT
  Age: 73 Year
  Sex: Male
  Weight: 132.42 kg

DRUGS (11)
  1. BYDUREON [Suspect]
     Indication: TYPE 2 DIABETES MELLITUS
     Dosage: LAT DOSE:19-MAR-2014
     Dates: start: 201401
  2. PLAVIX [Concomitant]
     Route: 048
  3. FLOMAX [Concomitant]
     Indication: PROSTATIC DISORDER
     Route: 048
  4. DIOVAN [Concomitant]
     Route: 048
  5. AMIODARONE [Concomitant]
     Route: 048
  6. AMBIEN [Concomitant]
     Route: 048
  7. SIMVASTATIN [Concomitant]
     Route: 048
  8. NOVOLOG [Concomitant]
     Dosage: 1DF=24UNITS
  9. LEVEMIR [Concomitant]
     Dosage: 1DF=40UNITS
  10. IMDUR [Concomitant]
     Route: 048
  11. AVODART [Concomitant]
     Route: 048

REACTIONS (1)
  - Cardiac arrest [Recovering/Resolving]
